FAERS Safety Report 18396719 (Version 1)
Quarter: 2020Q4

REPORT INFORMATION
  Report Type: Spontaneous
  Country: JP (occurrence: JP)
  Receive Date: 20201019
  Receipt Date: 20201019
  Transmission Date: 20210114
  Serious: Yes (Other)
  Sender: FDA-Public Use
  Company Number: JP-ABBVIE-20P-087-3611900-00

PATIENT
  Age: 49 Year
  Sex: Female

DRUGS (1)
  1. LEUPLIN [Suspect]
     Active Substance: LEUPROLIDE ACETATE
     Indication: BREAST CANCER
     Dosage: 22.5 MILLIGRAM, Q6MONTHS
     Route: 065

REACTIONS (10)
  - Dyskinesia [Unknown]
  - Tremor [Unknown]
  - Pollakiuria [Unknown]
  - Hypoaesthesia [Unknown]
  - Bone disorder [Unknown]
  - Arthralgia [Unknown]
  - Neck pain [Unknown]
  - Musculoskeletal stiffness [Unknown]
  - Seizure [Unknown]
  - Weight decreased [Unknown]
